FAERS Safety Report 9592227 (Version 2)
Quarter: 2013Q4

REPORT INFORMATION
  Report Type: Spontaneous
  Country: BR (occurrence: BR)
  Receive Date: 20131004
  Receipt Date: 20131101
  Transmission Date: 20140711
  Serious: Yes (Life-Threatening, Hospitalization, Other)
  Sender: FDA-Public Use
  Company Number: BR-ASTRAZENECA-2013SE72843

PATIENT
  Age: 67 Year
  Sex: Female

DRUGS (8)
  1. ATENOLOL [Suspect]
     Indication: HYPERTENSION
     Route: 048
  2. ATANCAD HCT [Suspect]
     Indication: HYPERTENSION
     Dosage: 16/12.5 MG, DAILY
     Route: 048
     Dates: start: 2010, end: 201310
  3. CRESTOR [Suspect]
     Indication: BLOOD CHOLESTEROL INCREASED
     Route: 048
  4. BRILINTA [Suspect]
     Indication: VENOUS OCCLUSION
     Route: 048
     Dates: start: 201310
  5. CONTRAST USED IN ANGIOPLASTY [Suspect]
     Route: 065
  6. FEMOSTON CONTI [Concomitant]
     Indication: HORMONE REPLACEMENT THERAPY
  7. PANTOPRAZOLE [Concomitant]
     Indication: GASTRIC DISORDER
  8. ASPIRINA PREVENT [Concomitant]
     Indication: VENOUS OCCLUSION
     Dates: start: 201310

REACTIONS (5)
  - Anaphylactic shock [Recovered/Resolved]
  - Venous occlusion [Recovered/Resolved]
  - Pulmonary embolism [Recovered/Resolved]
  - Haematoma [Not Recovered/Not Resolved]
  - Off label use [Not Recovered/Not Resolved]
